FAERS Safety Report 6810915-2 (Version None)
Quarter: 2010Q2

REPORT INFORMATION
  Report Type: 
  Country: None (occurrence: None)
  Receive Date: 20100630
  Receipt Date: 20081107
  Transmission Date: 20101027
  Serious: No
  Sender: FDA-Public Use
  Company Number: US-PFIZER INC-2008016866

PATIENT
  Sex: Female
  Weight: 96.16 kg

DRUGS (1)
  1. NICOTROL [Suspect]
     Indication: SMOKING CESSATION THERAPY
     Route: 055
     Dates: start: 20080201

REACTIONS (8)
  - ANXIETY [None]
  - CHEST PAIN [None]
  - CHOKING SENSATION [None]
  - DYSPHONIA [None]
  - FEELING ABNORMAL [None]
  - OROPHARYNGEAL PAIN [None]
  - SENSATION OF FOREIGN BODY [None]
  - SWEAT GLAND DISORDER [None]
